FAERS Safety Report 12615226 (Version 1)
Quarter: 2016Q3

REPORT INFORMATION
  Report Type: Spontaneous
  Country: IN (occurrence: IN)
  Receive Date: 20160802
  Receipt Date: 20160802
  Transmission Date: 20161109
  Serious: Yes (Other)
  Sender: FDA-Public Use
  Company Number: IN-MYLANLABS-2016M1031237

PATIENT

DRUGS (3)
  1. TRETINOIN. [Suspect]
     Active Substance: TRETINOIN
     Indication: ACUTE PROMYELOCYTIC LEUKAEMIA
     Dosage: 45 MG/ME2 IN DIVIDED DOSES
     Route: 065
  2. ARSENIC TRIOXIDE [Concomitant]
     Active Substance: ARSENIC TRIOXIDE
     Indication: ACUTE PROMYELOCYTIC LEUKAEMIA
     Dosage: 0.15 MG/KG, ONCE DAILY
     Route: 065
  3. PREDNISOLONE. [Concomitant]
     Active Substance: PREDNISOLONE
     Indication: ACUTE PROMYELOCYTIC LEUKAEMIA
     Dosage: 1 MG/KG, ONCE DAILY
     Route: 065

REACTIONS (6)
  - Calculus urinary [Recovered/Resolved]
  - Klebsiella infection [Unknown]
  - Unmasking of previously unidentified disease [Unknown]
  - Hydronephrosis [Recovered/Resolved]
  - Urosepsis [Unknown]
  - Hypercalcaemia [Recovered/Resolved]
